FAERS Safety Report 14335577 (Version 2)
Quarter: 2018Q2

REPORT INFORMATION
  Report Type: Spontaneous
  Country: DE (occurrence: DE)
  Receive Date: 20171229
  Receipt Date: 20180416
  Transmission Date: 20180711
  Serious: Yes (Other)
  Sender: FDA-Public Use
  Company Number: DE-TEVA-2017-DE-836908

PATIENT
  Age: 32 Year
  Sex: Female

DRUGS (4)
  1. AMPICILLIN [Suspect]
     Active Substance: AMPICILLIN
     Dosage: 3X2G AMPICILLIN
     Route: 065
  2. VAGI-C [Suspect]
     Active Substance: ASCORBIC ACID
     Indication: INFECTION PROPHYLAXIS
     Route: 067
  3. VAGIFLOR (LACTOBACILLUS ACIDOPHILUS) [Suspect]
     Active Substance: LACTOBACILLUS ACIDOPHILUS
     Route: 065
  4. BROMOCRIPTINE [Concomitant]
     Active Substance: BROMOCRIPTINE
     Dosage: 0.5 G TAB
     Dates: start: 20170426, end: 20170504

REACTIONS (7)
  - Premature rupture of membranes [Unknown]
  - Abortion spontaneous [Unknown]
  - Stillbirth [Unknown]
  - Infection [Unknown]
  - Pain [Recovered/Resolved]
  - Burning sensation [Recovered/Resolved]
  - Maternal exposure during pregnancy [Unknown]

NARRATIVE: CASE EVENT DATE: 20170815
